FAERS Safety Report 5500305-7 (Version None)
Quarter: 2007Q4

REPORT INFORMATION
  Report Type: 
  Country: None (occurrence: None)
  Receive Date: 20071025
  Receipt Date: 20071016
  Transmission Date: 20080405
  Serious: Yes (Hospitalization)
  Sender: FDA-Public Use
  Company Number: S07-USA-03425-01

PATIENT
  Age: 49 Year
  Sex: Male

DRUGS (4)
  1. LEXAPRO [Suspect]
     Indication: MAJOR DEPRESSION
     Dosage: 20 MG QD PO
     Route: 048
     Dates: start: 20070604, end: 20070806
  2. LEXAPRO [Suspect]
     Indication: MAJOR DEPRESSION
     Dosage: 10 MG QD PO
     Route: 048
     Dates: start: 20060807, end: 20070603
  3. TYLENOL PM                       (ACETAMINOPHEN) [Concomitant]
  4. CELEBREX [Concomitant]

REACTIONS (1)
  - ALCOHOLISM [None]
